FAERS Safety Report 7648829-0 (Version None)
Quarter: 2011Q3

REPORT INFORMATION
  Report Type: 
  Country: None (occurrence: None)
  Receive Date: 20110801
  Receipt Date: 20110727
  Transmission Date: 20111222
  Serious: Yes (Other)
  Sender: FDA-Public Use
  Company Number: HU-PFIZER INC-2011172257

PATIENT
  Age: 79 Year
  Sex: Male
  Weight: 74 kg

DRUGS (6)
  1. PREDUCTAL [Concomitant]
     Dosage: UNK
  2. COVIOGAL [Concomitant]
     Dosage: UNK
  3. ACETYLSALICYLIC ACID [Concomitant]
     Dosage: UNK, 1X/DAY
  4. DIOVAN [Concomitant]
     Dosage: UNK
  5. LYRICA [Suspect]
     Indication: NEURALGIA
     Dosage: 300 MG, 1X/DAY
     Dates: start: 20110601, end: 20110724
  6. CARDURA [Concomitant]
     Dosage: UNK

REACTIONS (2)
  - BLOOD PRESSURE FLUCTUATION [None]
  - DYSPNOEA [None]
